FAERS Safety Report 20515088 (Version 7)
Quarter: 2022Q2

REPORT INFORMATION
  Report Type: Spontaneous
  Country: PL (occurrence: PL)
  Receive Date: 20220224
  Receipt Date: 20220525
  Transmission Date: 20220721
  Serious: Yes (Hospitalization, Other)
  Sender: FDA-Public Use
  Company Number: PL-MYLANLABS-2022M1014574

PATIENT
  Age: 18 Year
  Sex: Female

DRUGS (27)
  1. OLANZAPINE [Suspect]
     Active Substance: OLANZAPINE
     Indication: Bipolar disorder
     Dosage: 20 MILLIGRAM, UNK
     Route: 065
  2. OLANZAPINE [Suspect]
     Active Substance: OLANZAPINE
     Indication: Mania
     Dosage: 10 MILLIGRAM
  3. OLANZAPINE [Suspect]
     Active Substance: OLANZAPINE
     Indication: Depression
     Dosage: 15 MILLIGRAM
  4. OLANZAPINE [Suspect]
     Active Substance: OLANZAPINE
     Indication: Bipolar I disorder
  5. SERTRALINE [Suspect]
     Active Substance: SERTRALINE HYDROCHLORIDE
     Indication: Depression
     Dosage: 50 MILLIGRAM, UNK
     Route: 065
  6. SERTRALINE [Suspect]
     Active Substance: SERTRALINE HYDROCHLORIDE
     Indication: Bipolar disorder
     Dosage: 50 MILLIGRAM, QD (50 MILLIGRAM DAILY)
     Route: 065
  7. SERTRALINE [Suspect]
     Active Substance: SERTRALINE HYDROCHLORIDE
     Indication: Bipolar I disorder
  8. SERTRALINE [Suspect]
     Active Substance: SERTRALINE HYDROCHLORIDE
     Indication: Mental impairment
  9. CARBAMAZEPINE [Suspect]
     Active Substance: CARBAMAZEPINE
     Indication: Depression
     Dosage: 400 MILLIGRAM, UNK
     Route: 065
  10. CARBAMAZEPINE [Suspect]
     Active Substance: CARBAMAZEPINE
     Indication: Bipolar I disorder
  11. CARBAMAZEPINE [Suspect]
     Active Substance: CARBAMAZEPINE
     Indication: Bipolar disorder
  12. LITHIUM [Suspect]
     Active Substance: LITHIUM
     Indication: Depression
     Dosage: 2 DOSAGE FORM, QD (2 DOSAGE FORM, DAILY, TABLETS)
     Route: 048
  13. LITHIUM [Suspect]
     Active Substance: LITHIUM
     Indication: Bipolar I disorder
     Dosage: 5 DOSAGE FORM
     Route: 048
  14. RISPERIDONE [Suspect]
     Active Substance: RISPERIDONE
     Indication: Depression
     Dosage: 1 MILLIGRAM, UNK
     Route: 065
  15. RISPERIDONE [Suspect]
     Active Substance: RISPERIDONE
     Indication: Bipolar I disorder
     Dosage: 2 MILLIGRAM, UNK
     Route: 065
  16. RISPERIDONE [Suspect]
     Active Substance: RISPERIDONE
     Indication: Mental impairment
     Dosage: 2 MILLIGRAM, QD (2 MILLIGRAM DAILY)
     Route: 065
  17. RISPERIDONE [Suspect]
     Active Substance: RISPERIDONE
     Dosage: 1 MILLIGRAM, QD (1 MILLIGRAM DAILY)
     Route: 065
  18. HALOPERIDOL [Suspect]
     Active Substance: HALOPERIDOL
     Indication: Bipolar disorder
     Dosage: 5 MILLIGRAM, TOTAL
     Route: 030
  19. HALOPERIDOL [Suspect]
     Active Substance: HALOPERIDOL
     Dosage: UNK, SINGLE DOSE
  20. LEVOTHYROXINE [Concomitant]
     Active Substance: LEVOTHYROXINE
     Indication: Hypothyroidism
     Dosage: 25 MICROGRAM
  21. LEVOTHYROXINE [Concomitant]
     Active Substance: LEVOTHYROXINE
     Dosage: 50 MICROGRAM
  22. LITHIUM [Concomitant]
     Active Substance: LITHIUM
     Indication: Mood altered
     Dosage: 2 DOSAGE FORM, BID
     Route: 065
  23. LITHIUM [Concomitant]
     Active Substance: LITHIUM
     Dosage: 5 DOSAGE FORM (5 TABLETS PER DAY)
     Route: 065
  24. CARBAMAZEPINE [Concomitant]
     Active Substance: CARBAMAZEPINE
     Indication: Mood altered
     Dosage: 400 MILLIGRAM
     Route: 065
  25. CARBAMAZEPINE [Concomitant]
     Active Substance: CARBAMAZEPINE
     Indication: Depression
  26. CLONAZEPAM [Concomitant]
     Active Substance: CLONAZEPAM
     Indication: Bipolar I disorder
     Dosage: 1 MILLIGRAM, TOTAL
     Route: 030
  27. CLONAZEPAM [Concomitant]
     Active Substance: CLONAZEPAM
     Dosage: UNK, SINGLE DOSE

REACTIONS (11)
  - Drug ineffective [Unknown]
  - Condition aggravated [Unknown]
  - Therapy partial responder [Unknown]
  - Hyperprolactinaemia [Unknown]
  - Somnolence [Recovered/Resolved]
  - Amenorrhoea [Unknown]
  - Euphoric mood [Recovered/Resolved]
  - Bipolar disorder [Unknown]
  - Body mass index increased [Recovered/Resolved]
  - Withdrawal syndrome [Recovered/Resolved]
  - Thyroid hormones decreased [Unknown]
